FAERS Safety Report 15326069 (Version 1)
Quarter: 2018Q3

REPORT INFORMATION
  Report Type: Spontaneous
  Country: US (occurrence: US)
  Receive Date: 20180823
  Receipt Date: 20180823
  Transmission Date: 20181010
  Serious: Yes (Life-Threatening)
  Sender: FDA-Public Use
  Company Number: None

PATIENT
  Age: 27 Year
  Sex: Female
  Weight: 60.75 kg

DRUGS (4)
  1. MIRALAX [Suspect]
     Active Substance: POLYETHYLENE GLYCOL 3350
     Indication: ABDOMINAL DISTENSION
     Dates: start: 20180401, end: 20180701
  2. MIRALAX [Suspect]
     Active Substance: POLYETHYLENE GLYCOL 3350
     Indication: CONSTIPATION
  3. MILK OF MAGNESIA [Suspect]
     Active Substance: MAGNESIUM HYDROXIDE
     Indication: CONSTIPATION
  4. MILK OF MAGNESIA [Suspect]
     Active Substance: MAGNESIUM HYDROXIDE
     Indication: ABDOMINAL DISTENSION
     Dates: start: 20180401, end: 20180701

REACTIONS (6)
  - Nightmare [None]
  - Abdominal distension [None]
  - Night sweats [None]
  - Nuclear magnetic resonance imaging abnormal [None]
  - Post-traumatic stress disorder [None]
  - Paranoia [None]

NARRATIVE: CASE EVENT DATE: 20180630
